FAERS Safety Report 17886128 (Version 1)
Quarter: 2020Q2

REPORT INFORMATION
  Report Type: Spontaneous
  Country: CA (occurrence: CA)
  Receive Date: 20200611
  Receipt Date: 20200611
  Transmission Date: 20200714
  Serious: Yes (Other)
  Sender: FDA-Public Use
  Company Number: CA-JNJFOC-20200606514

PATIENT
  Sex: Female

DRUGS (1)
  1. TRI-CYCLEN [Suspect]
     Active Substance: ETHINYL ESTRADIOL\NORGESTIMATE
     Indication: ORAL CONTRACEPTION
     Route: 065

REACTIONS (2)
  - Road traffic accident [Unknown]
  - Surgery [Unknown]
